FAERS Safety Report 21448878 (Version 2)
Quarter: 2022Q4

REPORT INFORMATION
  Report Type: Spontaneous
  Country: CH (occurrence: CH)
  Receive Date: 20221013
  Receipt Date: 20221017
  Transmission Date: 20230113
  Serious: Yes (Hospitalization, Other)
  Sender: FDA-Public Use
  Company Number: None

PATIENT
  Age: 21 Year
  Sex: Male
  Weight: 115.7 kg

DRUGS (29)
  1. CYCLOPHOSPHAMIDE [Suspect]
     Active Substance: CYCLOPHOSPHAMIDE
     Indication: Acute myeloid leukaemia
     Dosage: 1860 MG CYCLICAL, ON  14JUN AND 28JUN22
     Route: 042
     Dates: start: 20220614, end: 20220628
  2. HEPARIN [Suspect]
     Active Substance: HEPARIN SODIUM
     Indication: Embolism venous
     Dosage: THERAPEUTIC DOSAGE ACCORDING TO LABORATORY LEVELS
     Route: 041
     Dates: start: 20220606, end: 20220706
  3. HEPARIN [Suspect]
     Active Substance: HEPARIN SODIUM
     Dosage: HIGHLY PROPHYLACTIC DOSAGE
     Route: 041
     Dates: start: 20220714, end: 20220812
  4. ASPARAGINASE [Suspect]
     Active Substance: ASPARAGINASE
     Indication: Acute myeloid leukaemia
     Dosage: 14850 UNITS CYCLICAL RESPECTIVELY ON 21JUN, 23JUN, 26JUN2022
     Route: 041
     Dates: start: 20220621, end: 20220626
  5. AMOXICILLIN\CLAVULANATE POTASSIUM [Concomitant]
     Active Substance: AMOXICILLIN\CLAVULANATE POTASSIUM
     Indication: Necrotising fasciitis
     Dosage: 1 PILL 875 MG/ 125 MG EVERY 8H ORAL
     Route: 048
     Dates: start: 20220706, end: 20220708
  6. CRESEMBA [Suspect]
     Active Substance: ISAVUCONAZONIUM SULFATE
     Indication: Product used for unknown indication
     Dosage: 200 MG
     Route: 048
     Dates: start: 20220615, end: 20220711
  7. CEFEPIME [Suspect]
     Active Substance: CEFEPIME HYDROCHLORIDE
     Indication: Necrotising fasciitis
     Dosage: 2 G, 6 HOURS
     Route: 042
     Dates: start: 20220626, end: 20220706
  8. CLINDAMYCIN [Suspect]
     Active Substance: CLINDAMYCIN
     Indication: Fournier^s gangrene
     Dosage: 900 MG, 8 HOURS
     Route: 041
     Dates: start: 20220628, end: 20220702
  9. METHOTREXATE [Concomitant]
     Active Substance: METHOTREXATE
     Indication: Acute myeloid leukaemia
     Dosage: 15 MG CYCLICAL ON 14JUN2022, 21JUN2022, 12JUL2022
     Route: 037
     Dates: start: 20220614, end: 20220712
  10. ELIQUIS [Concomitant]
     Active Substance: APIXABAN
     Indication: Embolism venous
     Dosage: 5 MG, 12 HOURS
     Route: 048
     Dates: start: 20220706, end: 20220708
  11. ELIQUIS [Concomitant]
     Active Substance: APIXABAN
     Dosage: 5 MG, 12 HOURS, CONTINUED
     Route: 048
     Dates: start: 20220813
  12. SOLU-MEDROL [Concomitant]
     Active Substance: METHYLPREDNISOLONE SODIUM SUCCINATE
     Indication: Acute myeloid leukaemia
     Dosage: 40 MG CYCLICAL ON ON 14JUN2022, 21JUN2022, 12JUL2022
     Route: 037
     Dates: start: 20220614, end: 20220712
  13. ALLOPURINOL [Concomitant]
     Active Substance: ALLOPURINOL
     Indication: Product used for unknown indication
     Dosage: 300 MG 1-0-0
     Route: 048
     Dates: start: 20220607, end: 20220613
  14. VINCRISTINE [Concomitant]
     Active Substance: VINCRISTINE
     Indication: Acute myeloid leukaemia
     Dosage: 2 MG ON 14JUN,21JUN, 28JUN2022
     Route: 042
     Dates: start: 20220614, end: 20220628
  15. BACTRIM [Concomitant]
     Active Substance: SULFAMETHOXAZOLE\TRIMETHOPRIM
     Indication: Product used for unknown indication
     Dosage: 1-0-0 RESPECTIVELY MON/WED/FRI
     Route: 048
     Dates: start: 20220610
  16. DAFALGAN [Concomitant]
     Active Substance: ACETAMINOPHEN
     Indication: Product used for unknown indication
     Dosage: 500 MG, NECESSARY, ON DEMAND, ONCE ON 02JUL2022
     Route: 048
     Dates: start: 20220702
  17. VALTREX [Concomitant]
     Active Substance: VALACYCLOVIR HYDROCHLORIDE
     Indication: Product used for unknown indication
     Dosage: 500 MG, 12 HOURS, 1-0-1
     Route: 048
     Dates: start: 20220606
  18. PANTOZOL [Concomitant]
     Active Substance: PANTOPRAZOLE SODIUM
     Indication: Product used for unknown indication
     Dosage: 40 MG, 1 DAY
     Route: 048
     Dates: start: 20220610, end: 20220628
  19. KONAKION [Concomitant]
     Active Substance: PHYTONADIONE
     Indication: Product used for unknown indication
     Dosage: 10 MG, 1 DAY
     Route: 042
     Dates: start: 20220621, end: 20220706
  20. PREDNISOLONE [Concomitant]
     Active Substance: PREDNISOLONE
     Indication: Product used for unknown indication
     Dosage: 150 MG, 24 HOURS, 3-0-0-0
     Route: 048
     Dates: start: 20220614, end: 20220623
  21. AKYNZEO [Concomitant]
     Indication: Product used for unknown indication
     Dosage: ONCE ONE
     Route: 048
     Dates: start: 20220629, end: 20220629
  22. ZYPREXA [Concomitant]
     Active Substance: OLANZAPINE
     Indication: Product used for unknown indication
     Dosage: 5 MG
     Route: 048
     Dates: start: 20220629, end: 20220629
  23. HUMALOG [Concomitant]
     Active Substance: INSULIN LISPRO
     Indication: Product used for unknown indication
     Dosage: POST-INJECTION SCHEME, DOSE UNKNOWN
     Route: 058
     Dates: start: 20220628, end: 20220705
  24. CYTARABINE [Concomitant]
     Active Substance: CYTARABINE
     Indication: Acute myeloid leukaemia
     Dosage: 40 MG CYCLICAL, ON 14JUN2022, 21JUN2022,12JUL2022
     Route: 037
     Dates: start: 20220614, end: 20220712
  25. HYDROXYUREA [Concomitant]
     Active Substance: HYDROXYUREA
     Indication: Acute myeloid leukaemia
     Dosage: 1500 -2500 MG, BETWEEN 3-0-3 TO 5-0-5
     Route: 048
     Dates: start: 20220607, end: 20220610
  26. CERUBIDINE [Concomitant]
     Active Substance: DAUNORUBICIN HYDROCHLORIDE
     Indication: Acute myeloid leukaemia
     Dosage: 125 MG CYCLICAL RESPECTIVELY ON 14JUN,15JUN, 16JUN, 28JUN2022
     Route: 042
     Dates: start: 20220614, end: 20220628
  27. ZOLPIDEM [Concomitant]
     Active Substance: ZOLPIDEM TARTRATE
     Indication: Product used for unknown indication
     Dosage: 5 MG QD
     Route: 042
  28. PARACETAMOL FRESENIUS [Concomitant]
     Indication: Product used for unknown indication
     Dosage: 500 MG, AS NECESSARY
     Route: 041
  29. CEFUROXIME [Concomitant]
     Active Substance: CEFUROXIME
     Indication: Necrotising fasciitis
     Route: 065
     Dates: start: 20220708, end: 20220713

REACTIONS (8)
  - Drug-induced liver injury [Recovering/Resolving]
  - Tumour lysis syndrome [Unknown]
  - Hyperglycaemia [Unknown]
  - Bacteraemia [Unknown]
  - Diabetes mellitus [Unknown]
  - Escherichia bacteraemia [Unknown]
  - Necrotising fasciitis [Unknown]
  - Aplasia [Unknown]

NARRATIVE: CASE EVENT DATE: 20220622
